FAERS Safety Report 5901292-X (Version None)
Quarter: 2008Q3

REPORT INFORMATION
  Report Type: 
  Country: None (occurrence: None)
  Receive Date: 20080925
  Receipt Date: 20080915
  Transmission Date: 20090109
  Serious: Yes (Hospitalization)
  Sender: FDA-Public Use
  Company Number: ENT 2008-0149

PATIENT
  Age: 78 Year
  Sex: Male

DRUGS (6)
  1. ENTACAPONE [Suspect]
     Indication: ILL-DEFINED DISORDER
     Dosage: ONCE DAILY, ORAL
     Route: 048
     Dates: start: 20060101, end: 20080101
  2. SINEMT 110 [Concomitant]
  3. ASPIRIN [Concomitant]
  4. SIMVASTATIN [Concomitant]
  5. PERSANTIN MR [Concomitant]
  6. GLICLAZIDE [Concomitant]

REACTIONS (2)
  - ABNORMAL BEHAVIOUR [None]
  - DIARRHOEA [None]
